FAERS Safety Report 21607069 (Version 2)
Quarter: 2022Q4

REPORT INFORMATION
  Report Type: Spontaneous
  Country: US (occurrence: US)
  Receive Date: 20221117
  Receipt Date: 20221207
  Transmission Date: 20230113
  Serious: No
  Sender: FDA-Public Use
  Company Number: US-ORGANON-O2211USA001354

PATIENT
  Age: 23 Year
  Sex: Female

DRUGS (1)
  1. NEXPLANON [Suspect]
     Active Substance: ETONOGESTREL
     Indication: Contraception
     Dosage: 1 IMPLANT OF 68MG
     Dates: start: 20221103, end: 20221103

REACTIONS (3)
  - Device placement issue [Recovered/Resolved]
  - Complication of device insertion [Recovered/Resolved]
  - Product quality issue [Unknown]

NARRATIVE: CASE EVENT DATE: 20221103
